FAERS Safety Report 16309112 (Version 1)
Quarter: 2019Q2

REPORT INFORMATION
  Report Type: Report from Study
  Country: US (occurrence: US)
  Receive Date: 20190514
  Receipt Date: 20190514
  Transmission Date: 20190711
  Serious: Yes (Hospitalization)
  Sender: FDA-Public Use
  Company Number: US-BAUSCH-BL-2019-014092

PATIENT
  Sex: Female

DRUGS (2)
  1. BUDESONIDE EXTENDED RELEASE TABLETS [Suspect]
     Active Substance: BUDESONIDE
     Indication: PRODUCT USE IN UNAPPROVED INDICATION
  2. BUDESONIDE EXTENDED RELEASE TABLETS [Suspect]
     Active Substance: BUDESONIDE
     Indication: COLITIS MICROSCOPIC
     Dosage: EXTENDED RELEASE TABLETS
     Route: 065

REACTIONS (4)
  - Hospitalisation [Unknown]
  - Therapy cessation [Unknown]
  - Inability to afford medication [Unknown]
  - Product use in unapproved indication [Unknown]
